FAERS Safety Report 14448177 (Version 1)
Quarter: 2018Q1

REPORT INFORMATION
  Report Type: Spontaneous
  Country: JP (occurrence: JP)
  Receive Date: 20180126
  Receipt Date: 20180126
  Transmission Date: 20180509
  Serious: Yes (Death)
  Sender: FDA-Public Use
  Company Number: JP-PFIZER INC-2018028928

PATIENT

DRUGS (2)
  1. CUBICIN [Suspect]
     Active Substance: DAPTOMYCIN
     Indication: SEPSIS
     Dosage: UNK
  2. ZYVOX [Suspect]
     Active Substance: LINEZOLID
     Indication: SEPSIS
     Dosage: UNK

REACTIONS (1)
  - Death [Fatal]
